FAERS Safety Report 10148875 (Version 1)
Quarter: 2014Q2

REPORT INFORMATION
  Report Type: Report from Study
  Country: CA (occurrence: CA)
  Receive Date: 20140502
  Receipt Date: 20140502
  Transmission Date: 20141212
  Serious: Yes (Other)
  Sender: FDA-Public Use
  Company Number: CA-009507513-1404CAN014506

PATIENT
  Sex: Female

DRUGS (3)
  1. FOSAVANCE [Suspect]
     Route: 048
  2. GLEEVEC [Suspect]
     Dosage: 400 MG, QD
     Route: 048
  3. GLEEVEC [Suspect]
     Dosage: 300 MG, QD
     Route: 048

REACTIONS (10)
  - Blood pressure increased [Unknown]
  - Nasal obstruction [Unknown]
  - Osteoporosis [Unknown]
  - Photosensitivity reaction [Unknown]
  - Vision blurred [Unknown]
  - Weight increased [Unknown]
  - Muscle spasms [Unknown]
  - Myalgia [Unknown]
  - Nausea [Unknown]
  - Headache [Unknown]
